FAERS Safety Report 14026276 (Version 1)
Quarter: 2017Q3

REPORT INFORMATION
  Report Type: Spontaneous
  Country: DE (occurrence: DE)
  Receive Date: 20170929
  Receipt Date: 20170929
  Transmission Date: 20171128
  Serious: Yes (Congenital Anomaly, Other)
  Sender: FDA-Public Use
  Company Number: DE-PFIZER INC-2017416520

PATIENT
  Sex: Female

DRUGS (4)
  1. MAGNESIUM SULFATE. [Concomitant]
     Active Substance: MAGNESIUM SULFATE
     Indication: PRE-ECLAMPSIA
     Dosage: UNK
     Route: 064
     Dates: start: 20161216, end: 20170112
  2. PRESINOL [Concomitant]
     Active Substance: METHYLDOPA
     Indication: PRE-ECLAMPSIA
     Route: 064
  3. FOLIO FORTE [Concomitant]
     Active Substance: FOLIC ACID\VITAMINS
     Indication: PROPHYLAXIS OF NEURAL TUBE DEFECT
     Dosage: 0.8 MG, DAILY
     Route: 064
  4. VENLAFAXINE HCL [Suspect]
     Active Substance: VENLAFAXINE HYDROCHLORIDE
     Indication: DEPRESSION
     Dosage: 150 MG, 1X/DAY
     Route: 064
     Dates: start: 20160522, end: 20170112

REACTIONS (5)
  - Ureteric stenosis [Recovering/Resolving]
  - Foetal heart rate abnormal [Unknown]
  - Maternal exposure during pregnancy [Unknown]
  - Congenital hydronephrosis [Recovering/Resolving]
  - Premature baby [Recovering/Resolving]
